FAERS Safety Report 6423518-9 (Version None)
Quarter: 2009Q4

REPORT INFORMATION
  Report Type: 
  Country: None (occurrence: None)
  Receive Date: 20091102
  Receipt Date: 20080908
  Transmission Date: 20100525
  Serious: No
  Sender: FDA-Public Use
  Company Number: A0746571A

PATIENT
  Age: 84 Year
  Sex: Female

DRUGS (10)
  1. RYTHMOL SR [Suspect]
     Indication: ATRIAL FIBRILLATION
     Dosage: 325MG TWICE PER DAY
     Route: 048
     Dates: start: 20060501
  2. FLUDROCORTISONE [Concomitant]
  3. KLOR-CON M [Concomitant]
  4. TRAMADOL HCL [Concomitant]
  5. TORSEMIDE [Concomitant]
  6. DIOVAN [Concomitant]
  7. ALOPURINOL [Concomitant]
  8. PLAVIX [Concomitant]
  9. ASPIRIN [Concomitant]
  10. SIMVASTATIN [Concomitant]

REACTIONS (2)
  - CHEST PAIN [None]
  - PAIN IN EXTREMITY [None]
